FAERS Safety Report 6306356-7 (Version None)
Quarter: 2009Q3

REPORT INFORMATION
  Report Type: 
  Country: None (occurrence: None)
  Receive Date: 20090812
  Receipt Date: 20090803
  Transmission Date: 20100115
  Serious: Yes (Hospitalization)
  Sender: FDA-Public Use
  Company Number: US-ELI_LILLY_AND_COMPANY-US200908000512

PATIENT
  Sex: Female
  Weight: 76.19 kg

DRUGS (3)
  1. BYETTA [Suspect]
     Indication: TYPE 2 DIABETES MELLITUS
     Dosage: 5 UG, 2/D
     Route: 058
     Dates: start: 20060101
  2. BYETTA [Suspect]
     Dosage: 10 UG, 2/D
  3. GLUCOPHAGE [Concomitant]
     Dosage: 1000 MG, DAILY (1/D)
     Route: 048

REACTIONS (2)
  - HIP ARTHROPLASTY [None]
  - OSTEOARTHRITIS [None]
